FAERS Safety Report 8583920 (Version 2)
Quarter: 2013Q1

REPORT INFORMATION
  Report Type: Spontaneous
  Country: US (occurrence: US)
  Receive Date: 20120529
  Receipt Date: 20130109
  Transmission Date: 20140127
  Serious: Yes (Other)
  Sender: FDA-Public Use
  Company Number: US-ROCHE-785027

PATIENT
  Age: 23 Year
  Sex: Female
  Weight: 45.4 kg

DRUGS (1)
  1. ACCUTANE [Suspect]
     Indication: ACNE
     Dosage: AS REPORTED: DOSE 40 MG ALTERNATING WITH 80 MG
     Route: 065
     Dates: start: 20010523, end: 20020603

REACTIONS (9)
  - Colitis ulcerative [Unknown]
  - Inflammatory bowel disease [Unknown]
  - Emotional distress [Unknown]
  - Dry skin [Unknown]
  - Fatigue [Unknown]
  - Myalgia [Unknown]
  - Dry eye [Unknown]
  - Pharyngeal oedema [Unknown]
  - Blood cholesterol increased [Unknown]
